FAERS Safety Report 8795098 (Version 2)
Quarter: 2015Q1

REPORT INFORMATION
  Report Type: Report from Study
  Country: US (occurrence: US)
  Receive Date: 20120917
  Receipt Date: 20150326
  Transmission Date: 20150721
  Serious: Yes (Death)
  Sender: FDA-Public Use
  Company Number: US-ROCHE-1127067

PATIENT
  Sex: Female

DRUGS (14)
  1. FILGRASTIM [Concomitant]
     Active Substance: FILGRASTIM
     Route: 058
  2. DECADRON [Concomitant]
     Active Substance: DEXAMETHASONE
     Route: 042
  3. CAMPTOSAR [Concomitant]
     Active Substance: IRINOTECAN HYDROCHLORIDE
     Route: 042
  4. ETOPOSIDE. [Concomitant]
     Active Substance: ETOPOSIDE
     Route: 048
  5. ZOMETA [Concomitant]
     Active Substance: ZOLEDRONIC ACID
     Route: 065
  6. ALOXI [Concomitant]
     Active Substance: PALONOSETRON HYDROCHLORIDE
     Route: 042
  7. CISPLATIN. [Concomitant]
     Active Substance: CISPLATIN
     Route: 042
  8. PROCRIT [Concomitant]
     Active Substance: ERYTHROPOIETIN
     Dosage: 40K
     Route: 058
  9. MITOTANE [Concomitant]
     Active Substance: MITOTANE
     Route: 048
  10. PEGFILGRASTIM [Concomitant]
     Active Substance: PEGFILGRASTIM
     Route: 058
  11. ATIVAN [Concomitant]
     Active Substance: LORAZEPAM
     Route: 065
  12. POTASSIUM CHLORIDE. [Concomitant]
     Active Substance: POTASSIUM CHLORIDE
     Route: 065
  13. MAGNESIUM SULFATE. [Concomitant]
     Active Substance: MAGNESIUM SULFATE
     Route: 065
  14. AVASTIN [Suspect]
     Active Substance: BEVACIZUMAB
     Indication: ADRENAL GLAND CANCER
     Route: 042
     Dates: start: 200704

REACTIONS (2)
  - Death [Fatal]
  - Off label use [Unknown]
